FAERS Safety Report 13108085 (Version 1)
Quarter: 2017Q1

REPORT INFORMATION
  Report Type: Spontaneous
  Country: US (occurrence: US)
  Receive Date: 20170112
  Receipt Date: 20170112
  Transmission Date: 20170428
  Serious: No
  Sender: FDA-Public Use
  Company Number: US-PFIZER INC-2017011446

PATIENT
  Sex: Female

DRUGS (2)
  1. OXAPROZIN. [Suspect]
     Active Substance: OXAPROZIN
     Indication: ARTHRITIS
     Dosage: 600 MG, 2X/DAY
  2. DAYPRO [Suspect]
     Active Substance: OXAPROZIN
     Indication: ARTHRITIS
     Dosage: 600 MG, 2X/DAY
     Route: 048
     Dates: start: 2001

REACTIONS (1)
  - Dyspepsia [Not Recovered/Not Resolved]
